FAERS Safety Report 6852868-7 (Version None)
Quarter: 2010Q3

REPORT INFORMATION
  Report Type: 
  Country: None (occurrence: None)
  Receive Date: 20100717
  Receipt Date: 20080115
  Transmission Date: 20110219
  Serious: No
  Sender: FDA-Public Use
  Company Number: US-PFIZER INC-2007097910

PATIENT
  Sex: Female
  Weight: 52.2 kg

DRUGS (7)
  1. CHANTIX [Suspect]
     Indication: SMOKING CESSATION THERAPY
     Route: 048
     Dates: start: 20071106
  2. COZAAR [Concomitant]
     Route: 048
  3. PLAVIX [Concomitant]
     Route: 048
  4. ZOCOR [Concomitant]
     Route: 048
  5. SYNTHROID [Concomitant]
     Route: 048
  6. PENTOXIFYLLINE [Concomitant]
     Route: 048
  7. IMDUR [Concomitant]
     Route: 048

REACTIONS (2)
  - FEELING ABNORMAL [None]
  - MALAISE [None]
